FAERS Safety Report 21668308 (Version 1)
Quarter: 2022Q4

REPORT INFORMATION
  Report Type: Spontaneous
  Country: CN (occurrence: CN)
  Receive Date: 20221201
  Receipt Date: 20221201
  Transmission Date: 20230113
  Serious: Yes (Other)
  Sender: FDA-Public Use
  Company Number: CN-PFIZER INC-PV202200113819

PATIENT
  Age: 22 Year
  Sex: Male

DRUGS (2)
  1. EPIRUBICIN [Suspect]
     Active Substance: EPIRUBICIN
     Indication: Neoplasm malignant
     Dosage: 111 MG, 1X/DAY
     Route: 041
     Dates: start: 20221112, end: 20221112
  2. CYCLOPHOSPHAMIDE [Suspect]
     Active Substance: CYCLOPHOSPHAMIDE
     Indication: Neoplasm malignant
     Dosage: 1.11 G, 1X/DAY
     Route: 041
     Dates: start: 20221112, end: 20221112

REACTIONS (2)
  - Nausea [Recovering/Resolving]
  - Dysphagia [Recovering/Resolving]

NARRATIVE: CASE EVENT DATE: 20221112
